FAERS Safety Report 5626967-1 (Version None)
Quarter: 2008Q1

REPORT INFORMATION
  Report Type: 
  Country: None (occurrence: None)
  Receive Date: 20080130
  Receipt Date: 20071106
  Transmission Date: 20080703
  Serious: Yes (Other)
  Sender: FDA-Public Use
  Company Number: US-WYE-H01184507

PATIENT
  Age: 53 Year
  Sex: Female

DRUGS (2)
  1. CORDARONE [Suspect]
  2. PACERONE [Suspect]
     Indication: ATRIAL FIBRILLATION

REACTIONS (1)
  - PULMONARY FIBROSIS [None]
